FAERS Safety Report 7730687-7 (Version None)
Quarter: 2011Q3

REPORT INFORMATION
  Report Type: 
  Country: None (occurrence: None)
  Receive Date: 20110906
  Receipt Date: 20110427
  Transmission Date: 20111222
  Serious: Yes (Hospitalization)
  Sender: FDA-Public Use
  Company Number: US-GLAXOSMITHKLINE-A0925394A

PATIENT
  Age: 67 Year
  Sex: Male

DRUGS (1)
  1. AVANDIA [Suspect]
     Indication: DIABETES MELLITUS
     Route: 048
     Dates: start: 20010504, end: 20090322

REACTIONS (7)
  - TRANSIENT ISCHAEMIC ATTACK [None]
  - PULMONARY OEDEMA [None]
  - ISCHAEMIA [None]
  - CORONARY ARTERY DISEASE [None]
  - ASTHENIA [None]
  - CEREBROVASCULAR ACCIDENT [None]
  - DYSPHAGIA [None]
